FAERS Safety Report 8198324 (Version 11)
Quarter: 2013Q2

REPORT INFORMATION
  Report Type: Report from Study
  Country: BE (occurrence: BE)
  Receive Date: 20111025
  Receipt Date: 20130508
  Transmission Date: 20140414
  Serious: Yes (Hospitalization)
  Sender: FDA-Public Use
  Company Number: BE-ROCHE-1003859

PATIENT
  Age: 44 Year
  Sex: Female
  Weight: 68 kg

DRUGS (11)
  1. VEMURAFENIB [Suspect]
     Indication: METASTATIC MALIGNANT MELANOMA
     Dosage: LAST DOSE PRIOR TO SAE 27/DEC/2011. TEMPORARILY INTERRUPTED.
     Route: 048
     Dates: start: 20110909, end: 20111227
  2. VEMURAFENIB [Suspect]
     Dosage: LAST DOSE PRIOR TO SAE 26/JAN/2012. TEMPORARILY INTERRUPTED.
     Route: 048
     Dates: start: 20120120, end: 20120126
  3. VEMURAFENIB [Suspect]
     Route: 048
     Dates: start: 20120131, end: 20120307
  4. VEMURAFENIB [Suspect]
     Route: 048
     Dates: start: 20120312
  5. XANAX [Concomitant]
     Route: 065
     Dates: start: 2011
  6. ZOMETA [Concomitant]
     Route: 065
     Dates: start: 20110909
  7. DAFALGAN CODEINE [Concomitant]
     Route: 065
     Dates: start: 2011
  8. MOVICOL [Concomitant]
     Dosage: DAILY DOSE :1 SACHET
     Route: 065
     Dates: start: 20120103
  9. D-CURE [Concomitant]
     Dosage: DAILY DOSE: 10 ML (AS REQUIRED)
     Route: 065
     Dates: start: 20120101
  10. SERLAIN [Concomitant]
     Route: 065
     Dates: start: 20120228
  11. MEDROL [Concomitant]
     Route: 065
     Dates: start: 20120222, end: 20120419

REACTIONS (2)
  - Epilepsy [Recovered/Resolved]
  - Epilepsy [Recovered/Resolved with Sequelae]
